FAERS Safety Report 22789989 (Version 9)
Quarter: 2025Q3

REPORT INFORMATION
  Report Type: Spontaneous
  Country: US (occurrence: US)
  Receive Date: 20230804
  Receipt Date: 20250930
  Transmission Date: 20251021
  Serious: Yes (Other)
  Sender: PFIZER
  Company Number: US-PFIZER INC-PV202300133456

PATIENT
  Age: 88 Year
  Sex: Female

DRUGS (4)
  1. PREMARIN [Suspect]
     Active Substance: ESTROGENS, CONJUGATED
     Indication: Hot flush
  2. PREMARIN [Suspect]
     Active Substance: ESTROGENS, CONJUGATED
     Dosage: 0.3 MG, 1X/DAY
  3. PREMARIN [Suspect]
     Active Substance: ESTROGENS, CONJUGATED
     Indication: Hot flush
  4. PREMARIN [Suspect]
     Active Substance: ESTROGENS, CONJUGATED
     Route: 067

REACTIONS (4)
  - Thyroid disorder [Not Recovered/Not Resolved]
  - Back disorder [Unknown]
  - Joint injury [Unknown]
  - Off label use [Unknown]
